FAERS Safety Report 21339555 (Version 2)
Quarter: 2022Q4

REPORT INFORMATION
  Report Type: Report from Study
  Country: US (occurrence: US)
  Receive Date: 20220915
  Receipt Date: 20221004
  Transmission Date: 20230113
  Serious: No
  Sender: FDA-Public Use
  Company Number: US-SA-SAC20220909000797

PATIENT
  Age: 55 Year
  Sex: Male

DRUGS (7)
  1. TERIFLUNOMIDE [Suspect]
     Active Substance: TERIFLUNOMIDE
     Indication: Multiple sclerosis
     Dosage: 14 MG, QD
     Route: 048
     Dates: start: 20220815
  2. GABAPENTIN [Concomitant]
     Active Substance: GABAPENTIN
  3. IRON [Concomitant]
     Active Substance: IRON
  4. MELOXICAM [Concomitant]
     Active Substance: MELOXICAM
  5. FOLIC ACID [Concomitant]
     Active Substance: FOLIC ACID
  6. ALBUTEROL [Concomitant]
     Active Substance: ALBUTEROL
  7. MECLIZINE [Concomitant]
     Active Substance: MECLIZINE HYDROCHLORIDE

REACTIONS (3)
  - Gait disturbance [Not Recovered/Not Resolved]
  - Tremor [Unknown]
  - Muscular weakness [Unknown]

NARRATIVE: CASE EVENT DATE: 20220901
